FAERS Safety Report 6270399-2 (Version None)
Quarter: 2009Q3

REPORT INFORMATION
  Report Type: 
  Country: None (occurrence: None)
  Receive Date: 20090716
  Receipt Date: 20090701
  Transmission Date: 20100115
  Serious: Yes (Hospitalization)
  Sender: FDA-Public Use
  Company Number: FR-GENENTECH-286848

PATIENT
  Sex: Female

DRUGS (10)
  1. RITUXIMAB [Suspect]
     Indication: BURKITT'S LYMPHOMA
     Dosage: 375 UNK, QD
     Route: 042
     Dates: start: 20060921
  2. RITUXIMAB [Suspect]
     Indication: ACUTE LYMPHOCYTIC LEUKAEMIA
  3. CYCLOPHOSPHAMIDE [Suspect]
     Indication: BURKITT'S LYMPHOMA
     Dosage: 475 MG, QD
     Route: 042
     Dates: start: 20060914
  4. CYCLOPHOSPHAMIDE [Suspect]
     Indication: ACUTE LYMPHOCYTIC LEUKAEMIA
  5. DOXORUBICIN HCL [Suspect]
     Indication: BURKITT'S LYMPHOMA
     Dosage: 96 MG, UNK
     Route: 042
     Dates: start: 20060923
  6. DOXORUBICIN HCL [Suspect]
     Indication: ACUTE LYMPHOCYTIC LEUKAEMIA
  7. METHOTREXATE [Suspect]
     Indication: BURKITT'S LYMPHOMA
     Dosage: 3200 MG, UNK
     Route: 042
     Dates: start: 20060922
  8. METHOTREXATE [Suspect]
     Indication: ACUTE LYMPHOCYTIC LEUKAEMIA
  9. VINCRISTINE [Suspect]
     Indication: BURKITT'S LYMPHOMA
     Dosage: 1590 MG, UNK
     Route: 042
     Dates: start: 20060914
  10. VINCRISTINE [Suspect]
     Indication: ACUTE LYMPHOCYTIC LEUKAEMIA

REACTIONS (1)
  - CANDIDA SEPSIS [None]
